FAERS Safety Report 9744783 (Version 1)
Quarter: 2013Q4

REPORT INFORMATION
  Report Type: Spontaneous
  Country: US (occurrence: US)
  Receive Date: 20131210
  Receipt Date: 20131210
  Transmission Date: 20140711
  Serious: Yes (Other)
  Sender: FDA-Public Use
  Company Number: US-ELI_LILLY_AND_COMPANY-US201312000811

PATIENT
  Sex: Female

DRUGS (1)
  1. FORTEO [Suspect]
     Indication: FRACTURE
     Dosage: 20 UG, QD
     Dates: start: 20120301

REACTIONS (3)
  - Colon cancer stage I [Unknown]
  - Wrist fracture [Unknown]
  - Off label use [Unknown]
